FAERS Safety Report 18390934 (Version 1)
Quarter: 2020Q4

REPORT INFORMATION
  Report Type: Spontaneous
  Country: GB (occurrence: GB)
  Receive Date: 20201016
  Receipt Date: 20201016
  Transmission Date: 20210114
  Serious: Yes (Death, Other)
  Sender: FDA-Public Use
  Company Number: GB-AMGEN-GBRSP2020166020

PATIENT

DRUGS (1)
  1. CARFILZOMIB [Suspect]
     Active Substance: CARFILZOMIB
     Indication: PLASMA CELL MYELOMA
     Dosage: UNK
     Route: 065

REACTIONS (8)
  - Asthenia [Fatal]
  - Colorectal cancer [Fatal]
  - Acute myeloid leukaemia [Fatal]
  - Cholangiocarcinoma [Fatal]
  - Cardiac failure [Fatal]
  - Death [Fatal]
  - Plasma cell myeloma [Fatal]
  - Cerebrovascular accident [Fatal]
